FAERS Safety Report 20502273 (Version 1)
Quarter: 2022Q1

REPORT INFORMATION
  Report Type: Spontaneous
  Country: CN (occurrence: CN)
  Receive Date: 20220222
  Receipt Date: 20220222
  Transmission Date: 20220423
  Serious: Yes (Disabling)
  Sender: FDA-Public Use
  Company Number: CN-FRESENIUS KABI-FK202201839

PATIENT
  Age: 92 Year
  Sex: Male
  Weight: 59 kg

DRUGS (10)
  1. INTRALIPID [Suspect]
     Active Substance: EGG PHOSPHOLIPIDS\GLYCERIN\SOYBEAN OIL
     Indication: Parenteral nutrition
     Dosage: THE DOSAGE FORM WAS REPORTED AS INJECTION IN THE SOURCE
     Route: 041
     Dates: start: 20220208, end: 20220209
  2. INTRALIPID [Suspect]
     Active Substance: EGG PHOSPHOLIPIDS\GLYCERIN\SOYBEAN OIL
     Dosage: THE DOSAGE FORM WAS REPORTED AS INJECTION IN THE SOURCE
     Route: 041
     Dates: start: 20220211, end: 20220212
  3. GLYCINE/ALANINE/SERINE/ASPARTIC ACID/CYSTINE/TYROSINE/LEUCINE/METHIONI [Concomitant]
     Indication: Parenteral nutrition
     Route: 041
     Dates: start: 20220208
  4. DEXTROSE [Concomitant]
     Active Substance: DEXTROSE
     Indication: Parenteral nutrition
     Route: 041
     Dates: start: 20220208
  5. SODIUM CHLORIDE [Concomitant]
     Active Substance: SODIUM CHLORIDE
     Indication: Parenteral nutrition
     Route: 041
     Dates: start: 20220208
  6. SODIUM CHLORIDE [Concomitant]
     Active Substance: SODIUM CHLORIDE
     Indication: Parenteral nutrition
     Route: 041
     Dates: start: 20220208
  7. GLYCINE/PYRIDOXINE HYDROCHLORIDE/BIOTIN/FOLIC ACID/CYANOCOBALAMIN/NICO [Concomitant]
     Indication: Parenteral nutrition
     Route: 041
     Dates: start: 20220208
  8. SODIUM GLYCEROPHOSPHATE [Concomitant]
     Active Substance: SODIUM GLYCEROPHOSPHATE
     Indication: Parenteral nutrition
     Route: 041
     Dates: start: 20220208
  9. MAGNESIUM SULFATE [Concomitant]
     Active Substance: MAGNESIUM SULFATE
     Indication: Parenteral nutrition
     Route: 041
     Dates: start: 20220208
  10. POTASSIUM CHLORIDE [Concomitant]
     Active Substance: POTASSIUM CHLORIDE
     Indication: Parenteral nutrition
     Route: 041
     Dates: start: 20220208

REACTIONS (1)
  - Diarrhoea [Recovered/Resolved]

NARRATIVE: CASE EVENT DATE: 20220209
